FAERS Safety Report 5074794-9 (Version None)
Quarter: 2006Q3

REPORT INFORMATION
  Report Type: 
  Country: None (occurrence: None)
  Receive Date: 20060804
  Receipt Date: 20060728
  Transmission Date: 20061208
  Serious: Yes (Hospitalization)
  Sender: FDA-Public Use
  Company Number: HQWYE540131JUL06

PATIENT
  Sex: 0

DRUGS (1)
  1. TYGACIL [Suspect]
     Indication: SKIN INFECTION
     Dosage: 50 MG 1X PER 12HR, INTRAVENOUS APPROXIMATELY 2 WEEKS
     Route: 042

REACTIONS (2)
  - STAPHYLOCOCCAL INFECTION [None]
  - SUPERINFECTION [None]
